FAERS Safety Report 6917809-2 (Version None)
Quarter: 2010Q3

REPORT INFORMATION
  Report Type: 
  Country: None (occurrence: None)
  Receive Date: 20100810
  Receipt Date: 20100727
  Transmission Date: 20110219
  Serious: Yes (Hospitalization)
  Sender: FDA-Public Use
  Company Number: US-ELI_LILLY_AND_COMPANY-US201002005865

PATIENT
  Sex: Male
  Weight: 85 kg

DRUGS (13)
  1. PEMETREXED [Suspect]
     Indication: NON-SMALL CELL LUNG CANCER STAGE III
     Dosage: 500 MG/M2, OTHER
     Route: 042
     Dates: start: 20090928, end: 20091110
  2. PEMETREXED [Suspect]
     Dosage: 500 MG/M2, OTHER
     Route: 042
     Dates: start: 20091207, end: 20100120
  3. CISPLATIN [Suspect]
     Indication: NON-SMALL CELL LUNG CANCER STAGE III
     Dosage: 110 MG, OTHER
     Route: 042
     Dates: start: 20090928, end: 20091110
  4. RADIATION [Suspect]
     Indication: NON-SMALL CELL LUNG CANCER STAGE III
     Dosage: UNK, UNKNOWN
     Route: 065
     Dates: start: 20090928, end: 20091111
  5. INDOMETHACIN [Concomitant]
     Indication: GOUT
     Dates: start: 20091102
  6. EMEND [Concomitant]
     Indication: NAUSEA
     Dates: start: 20091112
  7. HYDROCODONE [Concomitant]
     Indication: PAIN
     Dates: start: 20091120
  8. ZOFRAN [Concomitant]
     Indication: NAUSEA
     Dates: start: 20091112
  9. PROCHLORPERAZINE MALEATE [Concomitant]
     Indication: NAUSEA
     Dates: start: 20091112
  10. ZOLOFT [Concomitant]
     Indication: ANXIETY
     Dates: start: 20100120
  11. FOLIC ACID [Concomitant]
     Indication: PROPHYLAXIS
     Dates: start: 20090921
  12. VITAMIN B-12 [Concomitant]
     Indication: PROPHYLAXIS
     Dates: start: 20090921, end: 20100127
  13. DEXAMETHASONE [Concomitant]
     Indication: PROPHYLAXIS
     Dates: start: 20090921

REACTIONS (3)
  - DEHYDRATION [None]
  - DYSPNOEA [None]
  - PNEUMONIA [None]
